FAERS Safety Report 23737945 (Version 1)
Quarter: 2024Q2

REPORT INFORMATION
  Report Type: Spontaneous
  Country: US (occurrence: None)
  Receive Date: 20240412
  Receipt Date: 20240412
  Transmission Date: 20240716
  Serious: Yes (Disabling)
  Sender: FDA-Public Use
  Company Number: None

PATIENT
  Age: 68 Year
  Sex: Female
  Weight: 63 kg

DRUGS (1)
  1. MAYZENT [Suspect]
     Active Substance: SIPONIMOD
     Indication: Multiple sclerosis
     Dosage: FREQUENCY : DAILY;?
     Route: 048
     Dates: start: 20230814, end: 20231115

REACTIONS (5)
  - Asthenia [None]
  - Balance disorder [None]
  - Fall [None]
  - Cognitive disorder [None]
  - Therapy cessation [None]

NARRATIVE: CASE EVENT DATE: 20230831
